FAERS Safety Report 7909278-0 (Version None)
Quarter: 2011Q4

REPORT INFORMATION
  Report Type: 
  Country: None (occurrence: None)
  Receive Date: 20111111
  Receipt Date: 20111110
  Transmission Date: 20120403
  Serious: Yes (Disabling)
  Sender: FDA-Public Use
  Company Number: DK-BAYER-2011-108932

PATIENT
  Age: 34 Year
  Sex: Female
  Weight: 62 kg

DRUGS (1)
  1. YASMIN [Suspect]
     Indication: ORAL CONTRACEPTION
     Dosage: UNK
     Route: 048
     Dates: start: 20040101, end: 20111005

REACTIONS (5)
  - HEMIPLEGIA [None]
  - MUSCULAR WEAKNESS [None]
  - SPINAL CORD INFARCTION [None]
  - PARAESTHESIA [None]
  - HEMIPARESIS [None]
